FAERS Safety Report 13609497 (Version 1)
Quarter: 2017Q2

REPORT INFORMATION
  Report Type: Spontaneous
  Country: GB (occurrence: GB)
  Receive Date: 20170602
  Receipt Date: 20170602
  Transmission Date: 20170830
  Serious: Yes (Hospitalization, Disabling, Other)
  Sender: FDA-Public Use
  Company Number: GB-TEVA-771708ACC

PATIENT
  Age: 86 Year
  Sex: Male

DRUGS (5)
  1. BISOPROLOL [Concomitant]
     Active Substance: BISOPROLOL
  2. PHENYTOIN SODIUM. [Concomitant]
     Active Substance: PHENYTOIN SODIUM
  3. ASPIRIN. [Concomitant]
     Active Substance: ASPIRIN
  4. PERINDOPRIL ERBUMINE. [Suspect]
     Active Substance: PERINDOPRIL ERBUMINE
     Route: 048
  5. BUMETANIDE. [Suspect]
     Active Substance: BUMETANIDE
     Route: 048

REACTIONS (1)
  - Acute kidney injury [Unknown]
